FAERS Safety Report 16200489 (Version 2)
Quarter: 2019Q2

REPORT INFORMATION
  Report Type: Spontaneous
  Country: FR (occurrence: FR)
  Receive Date: 20190416
  Receipt Date: 20190530
  Transmission Date: 20190711
  Serious: Yes (Hospitalization)
  Sender: FDA-Public Use
  Company Number: FR-TEVA-2019-FR-1037796

PATIENT
  Age: 58 Year
  Sex: Female
  Weight: 60 kg

DRUGS (17)
  1. LYRICA [Suspect]
     Active Substance: PREGABALIN
     Dosage: UNK
     Route: 048
     Dates: end: 20100421
  2. COUMADINE [Concomitant]
     Active Substance: WARFARIN SODIUM
     Dosage: UNK
  3. ENDOXAN [Suspect]
     Active Substance: CYCLOPHOSPHAMIDE
     Dosage: 100 MILLIGRAM DAILY; 100 MG, 1X/DAY
     Route: 048
     Dates: start: 20100402, end: 20100420
  4. DOLIPRANE [Concomitant]
     Active Substance: ACETAMINOPHEN
     Dosage: UNK
  5. ISOPTIN [Concomitant]
     Active Substance: VERAPAMIL HYDROCHLORIDE
     Dosage: UNK
  6. ENDOXAN [Suspect]
     Active Substance: CYCLOPHOSPHAMIDE
     Dosage: 0.6 G/M2 - 3RD COURSE
     Route: 042
     Dates: start: 20091222
  7. ENDOXAN [Suspect]
     Active Substance: CYCLOPHOSPHAMIDE
     Dosage: 0.6 G/M2 - 4TH COURSE
     Route: 042
     Dates: start: 20100112
  8. ENDOXAN [Suspect]
     Active Substance: CYCLOPHOSPHAMIDE
     Dosage: 0.6 G/M2 - 2ND COURSE
     Route: 042
     Dates: start: 200912
  9. INEXIUM [Suspect]
     Active Substance: ESOMEPRAZOLE
     Dosage: UNK
     Route: 048
     Dates: end: 20100421
  10. RIVOTRIL [Concomitant]
     Active Substance: CLONAZEPAM
     Dosage: UNK
  11. ENDOXAN [Suspect]
     Active Substance: CYCLOPHOSPHAMIDE
     Dosage: 150 MG DAILY
     Route: 048
     Dates: start: 20100121, end: 20100322
  12. BACTRIM [Suspect]
     Active Substance: SULFAMETHOXAZOLE\TRIMETHOPRIM
     Dosage: 1 DOSAGE FORMS DAILY; 1 DF, 1X/DAY
     Route: 048
     Dates: start: 201001, end: 20100421
  13. CORTANCYL [Concomitant]
     Active Substance: PREDNISONE
     Dosage: UNK
  14. MESNA. [Concomitant]
     Active Substance: MESNA
     Dosage: UNK
     Dates: end: 20100421
  15. NEBIVOLOL HYDROCHLORIDE [Concomitant]
     Active Substance: NEBIVOLOL HYDROCHLORIDE
     Dosage: UNK
  16. PRAVASTATIN SODIUM. [Suspect]
     Active Substance: PRAVASTATIN SODIUM
     Dosage: UNK
     Route: 048
     Dates: start: 201001, end: 20100421
  17. ENDOXAN [Suspect]
     Active Substance: CYCLOPHOSPHAMIDE
     Dosage: 0.6 G/M2 - 1ST COURSE
     Route: 042
     Dates: start: 20091115

REACTIONS (2)
  - Agranulocytosis [Recovered/Resolved]
  - Pyrexia [Recovered/Resolved]

NARRATIVE: CASE EVENT DATE: 20100420
